FAERS Safety Report 4428074-2 (Version None)
Quarter: 2004Q3

REPORT INFORMATION
  Report Type: 
  Country: None (occurrence: None)
  Receive Date: 20040813
  Receipt Date: 20040806
  Transmission Date: 20050211
  Serious: Yes (Hospitalization)
  Sender: FDA-Public Use
  Company Number: CERZ-10611

PATIENT
  Age: 68 Year
  Sex: Male
  Weight: 78.4723 kg

DRUGS (6)
  1. CEREZYME [Suspect]
     Indication: GAUCHER'S DISEASE
     Dosage: 5600 UNITS Q2WKS IV
     Route: 042
     Dates: start: 19980601
  2. LOPID [Concomitant]
  3. ZYLOPRIM [Concomitant]
  4. DIOVAN [Concomitant]
  5. NORVASC [Concomitant]
  6. ARANESP [Concomitant]

REACTIONS (3)
  - ASEPTIC NECROSIS BONE [None]
  - CONDITION AGGRAVATED [None]
  - QUADRUPLE VESSEL BYPASS GRAFT [None]
